FAERS Safety Report 10050274 (Version 1)
Quarter: 2014Q2

REPORT INFORMATION
  Report Type: Spontaneous
  Country: US (occurrence: US)
  Receive Date: 20140401
  Receipt Date: 20140401
  Transmission Date: 20141212
  Serious: Yes (Hospitalization, Other)
  Sender: FDA-Public Use
  Company Number: PHHY2014US036043

PATIENT
  Age: 22 Year
  Sex: Female

DRUGS (14)
  1. AZITHROMYCIN [Suspect]
     Indication: MYCOBACTERIUM AVIUM COMPLEX INFECTION
  2. MOXIFLOXACIN [Suspect]
     Indication: MYCOBACTERIUM AVIUM COMPLEX INFECTION
  3. ETHAMBUTOL [Suspect]
     Indication: MYCOBACTERIUM AVIUM COMPLEX INFECTION
  4. LEVOFLOXACIN [Suspect]
     Indication: MYCOBACTERIUM AVIUM COMPLEX INFECTION
  5. RIFABUTIN [Suspect]
     Indication: MYCOBACTERIUM AVIUM COMPLEX INFECTION
  6. DAPSONE [Suspect]
     Indication: MYCOBACTERIUM AVIUM COMPLEX INFECTION
  7. VANCOMYCIN [Concomitant]
  8. PIPERACILIN/TAZOBACTAM [Concomitant]
  9. COTRIMOXAZOLE [Concomitant]
     Indication: PROPHYLAXIS
  10. FLUCONAZOLE [Concomitant]
     Indication: PROPHYLAXIS
  11. ACICLOVIR [Concomitant]
     Indication: PROPHYLAXIS
  12. EMTRICITABINE W/TENOFOVIR [Concomitant]
     Indication: ANTIRETROVIRAL THERAPY
  13. RALTEGRAVIR [Concomitant]
     Indication: ANTIRETROVIRAL THERAPY
  14. ETRAVIRINE [Concomitant]
     Indication: ANTIRETROVIRAL THERAPY

REACTIONS (17)
  - Posterior reversible encephalopathy syndrome [Unknown]
  - Mycobacterium avium complex infection [Not Recovered/Not Resolved]
  - Ear pain [Unknown]
  - Weight decreased [Unknown]
  - Malaise [Unknown]
  - Night sweats [Unknown]
  - Hepatomegaly [Unknown]
  - Splenomegaly [Unknown]
  - Leukopenia [Unknown]
  - Hypochromic anaemia [Unknown]
  - Mastoiditis [Unknown]
  - Convulsion [Unknown]
  - Brain oedema [Unknown]
  - Hilar lymphadenopathy [Unknown]
  - Encephalitis [Unknown]
  - Meningitis [Unknown]
  - Pancytopenia [Unknown]
